FAERS Safety Report 4622131-3 (Version None)
Quarter: 2005Q1

REPORT INFORMATION
  Report Type: 
  Country: None (occurrence: None)
  Receive Date: 20050329
  Receipt Date: 20030410
  Transmission Date: 20050727
  Serious: No
  Sender: FDA-Public Use
  Company Number: 5411

PATIENT
  Age: 76 Year
  Sex: Female

DRUGS (1)
  1. PAMIDRONATE DISODIUM [Suspect]
     Indication: MULTIPLE MYELOMA
     Dosage: 90 MG MONTHLY IV
     Route: 042
     Dates: start: 19980601, end: 19990901

REACTIONS (3)
  - HAEMODIALYSIS [None]
  - NEPHROTIC SYNDROME [None]
  - OEDEMA PERIPHERAL [None]
